FAERS Safety Report 15669454 (Version 2)
Quarter: 2018Q4

REPORT INFORMATION
  Report Type: Spontaneous
  Country: US (occurrence: US)
  Receive Date: 20181129
  Receipt Date: 20181211
  Transmission Date: 20190205
  Serious: No
  Sender: FDA-Public Use
  Company Number: US-ASTRAZENECA-2018SF55871

PATIENT
  Age: 84 Year
  Sex: Male
  Weight: 90.7 kg

DRUGS (4)
  1. NEXIUM 24HR [Interacting]
     Active Substance: ESOMEPRAZOLE MAGNESIUM
     Indication: FLATULENCE
     Route: 048
     Dates: start: 20181121, end: 20181123
  2. BERBERINE [Interacting]
     Active Substance: BERBERINE
     Indication: TYPE 2 DIABETES MELLITUS
     Route: 065
  3. NEXIUM 24HR [Suspect]
     Active Substance: ESOMEPRAZOLE MAGNESIUM
     Indication: ERUCTATION
     Route: 048
     Dates: start: 20181121, end: 20181123
  4. BERBERINE [Interacting]
     Active Substance: BERBERINE
     Indication: BLOOD GLUCOSE ABNORMAL
     Route: 065

REACTIONS (3)
  - Drug interaction [Unknown]
  - Blood glucose increased [Unknown]
  - Product use in unapproved indication [Unknown]

NARRATIVE: CASE EVENT DATE: 20181121
